FAERS Safety Report 9353380 (Version 2)
Quarter: 2013Q2

REPORT INFORMATION
  Report Type: Spontaneous
  Country: DE (occurrence: DE)
  Receive Date: 20130618
  Receipt Date: 20130627
  Transmission Date: 20140414
  Serious: Yes (Other)
  Sender: FDA-Public Use
  Company Number: DE-PFIZER INC-2013180248

PATIENT
  Age: 74 Year
  Sex: Female

DRUGS (1)
  1. DOXORUBICIN HCL [Suspect]
     Dosage: UNK
     Dates: start: 20051012, end: 20060105

REACTIONS (3)
  - Hypertensive crisis [Unknown]
  - Acute pulmonary oedema [Unknown]
  - Left ventricular dysfunction [Unknown]
